FAERS Safety Report 5038136-7 (Version None)
Quarter: 2006Q2

REPORT INFORMATION
  Report Type: 
  Country: None (occurrence: None)
  Receive Date: 20060626
  Receipt Date: 20060616
  Transmission Date: 20061013
  Serious: No
  Sender: FDA-Public Use
  Company Number: TPA2003A01734

PATIENT
  Age: 73 Year
  Sex: Female

DRUGS (3)
  1. ACTOS [Suspect]
     Indication: DIABETES MELLITUS
     Dosage: PER ORAL
     Route: 048
     Dates: start: 20020501, end: 20020801
  2. GLYBURIDE [Concomitant]
  3. GLUCOPHAGE [Concomitant]

REACTIONS (7)
  - BLOOD PRESSURE INCREASED [None]
  - DIABETIC RETINOPATHY [None]
  - MACULAR OEDEMA [None]
  - MACULOPATHY [None]
  - RETINAL HAEMORRHAGE [None]
  - RETINAL PIGMENT EPITHELIOPATHY [None]
  - WEIGHT INCREASED [None]
